FAERS Safety Report 18447916 (Version 1)
Quarter: 2020Q4

REPORT INFORMATION
  Report Type: Report from Study
  Country: US (occurrence: US)
  Receive Date: 20201101
  Receipt Date: 20201101
  Transmission Date: 20210114
  Serious: Yes (Other)
  Sender: FDA-Public Use
  Company Number: NVSC2020US287032

PATIENT
  Age: 45 Year
  Sex: Female

DRUGS (1)
  1. GILENYA [Suspect]
     Active Substance: FINGOLIMOD HYDROCHLORIDE
     Indication: MULTIPLE SCLEROSIS
     Dosage: 0.5 MG, QD
     Route: 048

REACTIONS (11)
  - Blood iron decreased [Unknown]
  - Tremor [Unknown]
  - Oedema peripheral [Unknown]
  - Back pain [Unknown]
  - Vitamin B1 decreased [Unknown]
  - Vitamin D decreased [Unknown]
  - Pain in extremity [Unknown]
  - Weight decreased [Unknown]
  - Multiple sclerosis relapse [Unknown]
  - Vitamin B12 decreased [Unknown]
  - Amnesia [Unknown]

NARRATIVE: CASE EVENT DATE: 202009
